FAERS Safety Report 7489877-3 (Version None)
Quarter: 2011Q2

REPORT INFORMATION
  Report Type: 
  Country: None (occurrence: None)
  Receive Date: 20110517
  Receipt Date: 20110517
  Transmission Date: 20111010
  Serious: Yes (Other)
  Sender: FDA-Public Use
  Company Number: None

PATIENT
  Age: 71 Year
  Sex: Male
  Weight: 60.7 kg

DRUGS (1)
  1. CLINIMIX 2.75/10 SULFITE FREE IN DEXTROSE 10% [Suspect]
     Dosage: 2.75/5
     Dates: start: 20110430, end: 20110505

REACTIONS (5)
  - UNRESPONSIVE TO STIMULI [None]
  - MEDICATION ERROR [None]
  - BLOOD POTASSIUM INCREASED [None]
  - CARDIO-RESPIRATORY ARREST [None]
  - WRONG TECHNIQUE IN DRUG USAGE PROCESS [None]
